FAERS Safety Report 5673994-4 (Version None)
Quarter: 2008Q1

REPORT INFORMATION
  Report Type: 
  Country: None (occurrence: None)
  Receive Date: 20080320
  Receipt Date: 20080310
  Transmission Date: 20080703
  Serious: Yes (Other)
  Sender: FDA-Public Use
  Company Number: GB-RANBAXY-2008RR-13678

PATIENT

DRUGS (5)
  1. AMOXICILLIN [Suspect]
     Indication: DRUG USE FOR UNKNOWN INDICATION
     Dosage: UNK
     Route: 065
     Dates: start: 20071101
  2. DIGOXIN [Suspect]
     Indication: DRUG USE FOR UNKNOWN INDICATION
     Dosage: 62.5 UG, QD
     Route: 048
  3. ASPIRIN [Concomitant]
     Dosage: 75 MG, QD
     Route: 065
  4. ATENOLOL [Concomitant]
     Dosage: 50 MG, QD
     Route: 065
  5. BENDROFLUAZIDE [Concomitant]
     Dosage: 2.5 MG, QD
     Route: 065

REACTIONS (1)
  - JAUNDICE [None]
